FAERS Safety Report 5806295-1 (Version None)
Quarter: 2008Q3

REPORT INFORMATION
  Report Type: 
  Country: None (occurrence: None)
  Receive Date: 20080710
  Receipt Date: 20080701
  Transmission Date: 20090109
  Serious: Yes (Life-Threatening, Hospitalization, Other)
  Sender: FDA-Public Use
  Company Number: US-WYE-H04172008

PATIENT
  Sex: Female
  Weight: 68.1 kg

DRUGS (13)
  1. EFFEXOR XR [Suspect]
     Indication: DEPRESSION
     Dates: start: 20080401, end: 20080401
  2. EFFEXOR XR [Suspect]
     Indication: ANXIETY
     Dates: start: 20080401, end: 20080401
  3. EFFEXOR XR [Suspect]
     Dates: start: 20080401, end: 20080430
  4. EFFEXOR XR [Suspect]
     Route: 048
     Dates: start: 20010212
  5. EFFEXOR XR [Suspect]
     Dosage: ^PRESCRIBED 150 MG DAILY^
     Route: 048
     Dates: start: 20040401, end: 20080430
  6. VICODIN [Concomitant]
     Indication: BACK PAIN
     Dosage: 5/500
  7. DIAZEPAM [Concomitant]
     Indication: ANXIETY
     Dosage: 5 MG BID PRN
  8. DIAZEPAM [Concomitant]
     Indication: AGITATION
  9. PERCOCET [Concomitant]
     Indication: BACK PAIN
     Dosage: 5/325
     Route: 048
     Dates: start: 20040101
  10. AVAPRO [Concomitant]
     Indication: HYPERTENSION
     Route: 048
     Dates: start: 20060801
  11. SPIRIVA [Concomitant]
     Indication: CHRONIC OBSTRUCTIVE PULMONARY DISEASE
     Dosage: UNKNOWN
     Route: 055
  12. ACETYLSALICYLIC ACID SRT [Concomitant]
     Indication: PROPHYLAXIS
  13. NEXIUM [Concomitant]
     Indication: GASTROOESOPHAGEAL REFLUX DISEASE
     Dates: start: 20020101

REACTIONS (6)
  - ABNORMAL BEHAVIOUR [None]
  - AMNESIA [None]
  - DRUG WITHDRAWAL SYNDROME [None]
  - INJURY [None]
  - INTENTIONAL DRUG MISUSE [None]
  - SUICIDE ATTEMPT [None]
